FAERS Safety Report 4331146-4 (Version None)
Quarter: 2004Q1

REPORT INFORMATION
  Report Type: 
  Country: None (occurrence: None)
  Receive Date: 20040331
  Receipt Date: 20040316
  Transmission Date: 20041129
  Serious: Yes (Hospitalization)
  Sender: FDA-Public Use
  Company Number: A03200400832

PATIENT
  Age: 86 Year
  Sex: Female
  Weight: 51.7101 kg

DRUGS (9)
  1. PLAVIX [Suspect]
     Indication: CEREBROVASCULAR ACCIDENT
     Dosage: 75 MG QD - ORAL
     Route: 048
     Dates: start: 20040207, end: 20040224
  2. LEVOTHYROXINE SODIUM [Concomitant]
  3. GLIPIZIDE [Concomitant]
  4. FEXOFENADINE HYDROCHLORIDE [Concomitant]
  5. MULTI-VITAMINS [Concomitant]
  6. LISINOPRIL [Concomitant]
  7. DIGOXIN [Concomitant]
  8. MIRTAZAPINE [Concomitant]
  9. ZOLPIDEM TARTRATE [Concomitant]

REACTIONS (9)
  - ASTHENIA [None]
  - BLINDNESS TRANSIENT [None]
  - CHEST DISCOMFORT [None]
  - DYSURIA [None]
  - GLOSSODYNIA [None]
  - MYALGIA [None]
  - PAIN IN EXTREMITY [None]
  - PHARYNGOLARYNGEAL PAIN [None]
  - RASH [None]
